FAERS Safety Report 20001191 (Version 1)
Quarter: 2021Q4

REPORT INFORMATION
  Report Type: Spontaneous
  Country: US (occurrence: US)
  Receive Date: 20211026
  Receipt Date: 20211026
  Transmission Date: 20220303
  Serious: Yes (Death, Hospitalization)
  Sender: FDA-Public Use
  Company Number: None

PATIENT
  Age: 16 Year
  Sex: Male
  Weight: 148 kg

DRUGS (6)
  1. CYTARABINE [Suspect]
     Active Substance: CYTARABINE
     Dates: end: 20210921
  2. DAUNORUBICIN [Concomitant]
     Active Substance: DAUNORUBICIN
     Dates: end: 20211005
  3. METHOTREXATE [Concomitant]
     Active Substance: METHOTREXATE
     Dates: end: 20210928
  4. ONCASPAR [Concomitant]
     Active Substance: PEGASPARGASE
     Dates: end: 20210924
  5. PREDNISOLONE [Concomitant]
     Active Substance: PREDNISOLONE
     Dates: end: 20211008
  6. VINCRISTINE SULFATE [Concomitant]
     Active Substance: VINCRISTINE SULFATE
     Dates: end: 20211005

REACTIONS (19)
  - Pancreatitis acute [None]
  - Hepatic steatosis [None]
  - Hydrocholecystis [None]
  - Hyperglycaemia [None]
  - Hyperbilirubinaemia [None]
  - Drug-induced liver injury [None]
  - Cholestasis [None]
  - Hypocalcaemia [None]
  - Weight increased [None]
  - Venoocclusive liver disease [None]
  - Nephropathy toxic [None]
  - Hypoxia [None]
  - Blood potassium decreased [None]
  - Dialysis [None]
  - Adrenal suppression [None]
  - Candida infection [None]
  - Renal replacement therapy [None]
  - Fluid imbalance [None]
  - Ventricular tachycardia [None]

NARRATIVE: CASE EVENT DATE: 20211021
